FAERS Safety Report 6795335-1 (Version None)
Quarter: 2010Q2

REPORT INFORMATION
  Report Type: 
  Country: None (occurrence: None)
  Receive Date: 20100624
  Receipt Date: 20100624
  Transmission Date: 20101027
  Serious: Yes (Other)
  Sender: FDA-Public Use
  Company Number: None

PATIENT
  Age: 50 Year
  Sex: Male
  Weight: 68.0396 kg

DRUGS (5)
  1. CYMBALTA [Suspect]
     Indication: DEPRESSION
     Dosage: 60 MGS. 1X A DAY - 30 MGS.
     Dates: start: 20080617, end: 20090501
  2. CYMBALTA [Suspect]
     Indication: DRUG USE FOR UNKNOWN INDICATION
     Dosage: 60 MGS. 1X A DAY - 30 MGS.
     Dates: start: 20080617, end: 20090501
  3. ABILIFY [Concomitant]
  4. ZYBREXA [Concomitant]
  5. DEPAKOTE [Concomitant]

REACTIONS (5)
  - GENERAL PHYSICAL HEALTH DETERIORATION [None]
  - SPEECH DISORDER [None]
  - UNEVALUABLE EVENT [None]
  - URINARY INCONTINENCE [None]
  - WEIGHT DECREASED [None]
